FAERS Safety Report 20577172 (Version 1)
Quarter: 2022Q1

REPORT INFORMATION
  Report Type: Spontaneous
  Country: US (occurrence: US)
  Receive Date: 20220310
  Receipt Date: 20220310
  Transmission Date: 20220423
  Serious: No
  Sender: FDA-Public Use
  Company Number: US-GW PHARMA-202203USGW01201

PATIENT
  Sex: Male
  Weight: 39.456 kg

DRUGS (1)
  1. EPIDIOLEX [Suspect]
     Active Substance: CANNABIDIOL
     Indication: Lennox-Gastaut syndrome
     Dosage: 5.07 MG/KG/DAY, 100 MILLIGRAM, BID
     Dates: start: 20190913

REACTIONS (1)
  - Nightmare [Unknown]
